FAERS Safety Report 7312349-3 (Version None)
Quarter: 2011Q1

REPORT INFORMATION
  Report Type: 
  Country: None (occurrence: None)
  Receive Date: 20110224
  Receipt Date: 20110214
  Transmission Date: 20110831
  Serious: Yes (Other)
  Sender: FDA-Public Use
  Company Number: US-ELI_LILLY_AND_COMPANY-US201012004314

PATIENT
  Sex: Female

DRUGS (6)
  1. VITAMIN D [Concomitant]
  2. SYNTHROID [Concomitant]
  3. FORTEO [Suspect]
     Indication: OSTEOPOROSIS
     Dosage: 20 UG, DAILY (1/D)
     Route: 065
     Dates: start: 20100801
  4. CENTRUM SILVER [Concomitant]
  5. TYLENOL                                 /SCH/ [Concomitant]
  6. CALCIUM [Concomitant]

REACTIONS (2)
  - WRIST FRACTURE [None]
  - FALL [None]
